FAERS Safety Report 10523814 (Version 3)
Quarter: 2014Q4

REPORT INFORMATION
  Report Type: Report from Study
  Country: CA (occurrence: CA)
  Receive Date: 20141017
  Receipt Date: 20141212
  Transmission Date: 20150528
  Serious: Yes (Other)
  Sender: FDA-Public Use
  Company Number: CA-AMGEN-CANSP2014029164

PATIENT
  Age: 72 Year
  Sex: Female
  Weight: 50.7 kg

DRUGS (9)
  1. METHYLDOPA. [Concomitant]
     Active Substance: METHYLDOPA
     Dosage: 125 MG, BID
     Route: 048
  2. PROLIA [Suspect]
     Active Substance: DENOSUMAB
     Indication: OSTEOPOROSIS POSTMENOPAUSAL
     Dosage: 60 MG, Q6MO
     Route: 058
     Dates: start: 20140508
  3. PEROXIDE [Concomitant]
     Indication: TOOTHACHE
  4. B12                                /00056201/ [Concomitant]
     Dosage: UNK
  5. PARIET [Concomitant]
     Active Substance: RABEPRAZOLE SODIUM
     Dosage: 20 MG, QD
     Route: 048
  6. VITAMIN E                          /00110501/ [Concomitant]
     Dosage: UNK
  7. VITAMIN C [Concomitant]
     Active Substance: ASCORBIC ACID
     Dosage: UNK
  8. VITAMIN D                          /00107901/ [Concomitant]
     Active Substance: ERGOCALCIFEROL
     Dosage: UNK
  9. CALCIUM [Concomitant]
     Active Substance: CALCIUM
     Dosage: UNK

REACTIONS (11)
  - Carotid artery occlusion [Unknown]
  - Cough [Unknown]
  - Coronary artery occlusion [Unknown]
  - Contusion [Unknown]
  - Muscle spasms [Recovered/Resolved]
  - Bone pain [Not Recovered/Not Resolved]
  - Toothache [Not Recovered/Not Resolved]
  - Pain in extremity [Recovered/Resolved]
  - Rhinorrhoea [Unknown]
  - Nausea [Recovered/Resolved]
  - Dry eye [Recovering/Resolving]

NARRATIVE: CASE EVENT DATE: 201403
